FAERS Safety Report 5300734-0 (Version None)
Quarter: 2007Q2

REPORT INFORMATION
  Report Type: 
  Country: None (occurrence: None)
  Receive Date: 20070418
  Receipt Date: 20070406
  Transmission Date: 20071010
  Serious: Yes (Death)
  Sender: FDA-Public Use
  Company Number: US-KINGPHARMUSA00001-K200700428

PATIENT

DRUGS (15)
  1. ALTACE [Suspect]
     Indication: HYPERTENSION
     Dosage: 2.5 MG, QD
     Route: 048
     Dates: start: 20070305, end: 20070308
  2. FLUDEX /00340101/ [Suspect]
     Indication: HYPERTENSION
     Dosage: 1.5 MG, QD
     Route: 048
     Dates: start: 20070305, end: 20070308
  3. TRIFLUCAN [Suspect]
     Indication: DRUG USE FOR UNKNOWN INDICATION
     Dosage: 100 MG, QD
     Route: 048
     Dates: start: 20070205, end: 20070308
  4. EUPRESSYL /00631801/ [Suspect]
     Indication: HYPERTENSION
     Dosage: 30 MG, QD
     Route: 048
     Dates: start: 20070227, end: 20070227
  5. EUPRESSYL /00631801/ [Suspect]
     Dosage: 60 MG, QD
     Route: 048
     Dates: start: 20070228, end: 20070228
  6. EUPRESSYL /00631801/ [Suspect]
     Dosage: 120 MG, QD
     Route: 048
     Dates: start: 20070301, end: 20070303
  7. EUPRESSYL /00631801/ [Suspect]
     Dosage: 180 MG, QD
     Route: 048
     Dates: start: 20070304, end: 20070304
  8. SUTENT [Suspect]
     Indication: DRUG USE FOR UNKNOWN INDICATION
     Dosage: 50 MG, QD
     Route: 048
     Dates: start: 20070213, end: 20070309
  9. AVLOCARDYL /00030001/ [Suspect]
     Indication: DRUG USE FOR UNKNOWN INDICATION
     Dosage: 40 MG, QD
     Route: 048
     Dates: start: 20070308, end: 20070308
  10. ZELITREX /01269701/ [Concomitant]
     Dates: start: 20070307, end: 20070309
  11. DURAGESIC-100 [Concomitant]
     Dates: start: 20070215, end: 20070309
  12. ACTISKENAN [Concomitant]
     Dosage: UNK, UNK
     Dates: start: 20070215, end: 20070309
  13. LYSANXIA [Concomitant]
     Dates: start: 20070306, end: 20070309
  14. SOLU-MEDROL [Concomitant]
     Dates: start: 20070215, end: 20070310
  15. FUMAFER [Concomitant]
     Dates: start: 20070215, end: 20070309

REACTIONS (4)
  - BRAIN NATRIURETIC PEPTIDE INCREASED [None]
  - DYSPNOEA [None]
  - PULMONARY OEDEMA [None]
  - TROPONIN I INCREASED [None]
